FAERS Safety Report 5792568-8 (Version None)
Quarter: 2008Q2

REPORT INFORMATION
  Report Type: 
  Country: None (occurrence: None)
  Receive Date: 20080624
  Receipt Date: 20080609
  Transmission Date: 20081010
  Serious: Yes (Hospitalization)
  Sender: FDA-Public Use
  Company Number: 8033591

PATIENT
  Age: 31 Year
  Sex: Male

DRUGS (4)
  1. PREDNISOLONE [Suspect]
     Indication: ORGAN TRANSPLANT
  2. CYCLOSPORINE [Suspect]
     Indication: ORGAN TRANSPLANT
     Dates: end: 20040101
  3. CYCLOSPORINE [Suspect]
     Indication: ORGAN TRANSPLANT
     Dates: start: 20040101
  4. MYCOPHENOLATE MOFETIL [Suspect]
     Indication: ORGAN TRANSPLANT
     Dates: end: 20040101

REACTIONS (5)
  - CEREBRAL INFARCTION [None]
  - CLONIC CONVULSION [None]
  - DYSAESTHESIA [None]
  - HEMIPLEGIA [None]
  - HYPOAESTHESIA [None]
